FAERS Safety Report 16457631 (Version 1)
Quarter: 2019Q2

REPORT INFORMATION
  Report Type: Report from Study
  Country: FR (occurrence: FR)
  Receive Date: 20190620
  Receipt Date: 20190620
  Transmission Date: 20190711
  Serious: Yes (Other)
  Sender: FDA-Public Use
  Company Number: FR-MYLANLABS-2019M1056710

PATIENT
  Age: 50 Year
  Sex: Male

DRUGS (34)
  1. TEICOPLANIN [Suspect]
     Active Substance: TEICOPLANIN
     Dosage: 1500 MG,BID
     Route: 042
     Dates: start: 20170404, end: 20170405
  2. PRIMPERAN [Concomitant]
     Active Substance: METOCLOPRAMIDE HYDROCHLORIDE
     Indication: PROPHYLAXIS
     Dosage: UNK UNK,UNK
     Route: 048
     Dates: start: 20170410
  3. OXYNORMORO [Concomitant]
     Active Substance: OXYCODONE HYDROCHLORIDE
     Indication: PAIN
     Dosage: UNK UNK,UNK
     Route: 048
     Dates: end: 20170408
  4. OXYCONTIN [Concomitant]
     Active Substance: OXYCODONE HYDROCHLORIDE
     Indication: PAIN
     Dosage: UNK UNK,UNK
     Route: 048
     Dates: end: 2017
  5. GENTAMICIN. [Concomitant]
     Active Substance: GENTAMICIN
     Indication: OSTEOMYELITIS
     Dosage: UNK UNK,UNK
     Route: 042
     Dates: start: 20170317, end: 20170328
  6. LEVOFLOXACIN. [Suspect]
     Active Substance: LEVOFLOXACIN
     Indication: OSTEOMYELITIS
     Dosage: 750 MG,UNK
     Route: 048
     Dates: start: 20170328, end: 20170607
  7. FOSFOCINE [Concomitant]
     Active Substance: FOSFOMYCIN
     Indication: OSTEOMYELITIS
     Dosage: UNK UNK,UNK
     Route: 042
     Dates: start: 20170317, end: 20170328
  8. ISENTRESS [Concomitant]
     Active Substance: RALTEGRAVIR POTASSIUM
     Indication: HIV INFECTION
     Dosage: UNK UNK,UNK
     Route: 048
     Dates: start: 20161216
  9. TEICOPLANIN [Suspect]
     Active Substance: TEICOPLANIN
     Dosage: 1000 MG,QD
     Route: 042
     Dates: start: 20170402, end: 20170402
  10. VANCOMYCIN [Concomitant]
     Active Substance: VANCOMYCIN
     Indication: OSTEOMYELITIS
     Dosage: UNK UNK,UNK
     Route: 042
     Dates: start: 20170317, end: 20170330
  11. CEFTRIAXONE. [Concomitant]
     Active Substance: CEFTRIAXONE
     Indication: OSTEOMYELITIS
     Dosage: UNK UNK,UNK
     Route: 042
     Dates: start: 20170328, end: 20170409
  12. CEFTRIAXONE. [Concomitant]
     Active Substance: CEFTRIAXONE
     Dosage: UNK UNK,UNK
     Route: 042
     Dates: start: 20170414, end: 20170607
  13. LAROSCORBINE [Concomitant]
     Active Substance: ASCORBIC ACID
     Indication: PROPHYLAXIS
     Dosage: UNK UNK,UNK
     Route: 002
     Dates: start: 20170412, end: 20170620
  14. NORVIR [Concomitant]
     Active Substance: RITONAVIR
     Indication: HIV INFECTION
     Dosage: UNK UNK,UNK
     Route: 048
     Dates: start: 2009
  15. INTELENCE [Concomitant]
     Active Substance: ETRAVIRINE
     Indication: HIV INFECTION
     Dosage: UNK UNK,UNK
     Route: 048
     Dates: start: 20161216
  16. MOVICOL [Concomitant]
     Active Substance: POLYETHYLENE GLYCOL 3350\POTASSIUM CHLORIDE\SODIUM BICARBONATE\SODIUM CHLORIDE
     Indication: PROPHYLAXIS
     Dosage: UNK UNK,UNK
     Route: 048
     Dates: start: 20170311, end: 20170629
  17. PARACETAMOL [Concomitant]
     Active Substance: ACETAMINOPHEN
     Indication: PAIN
     Dosage: UNK UNK,UNK
     Route: 048
     Dates: start: 20170310, end: 20170318
  18. PREZISTA [Concomitant]
     Active Substance: DARUNAVIR ETHANOLATE
     Indication: HIV INFECTION
     Dosage: UNK UNK,UNK
     Route: 048
     Dates: start: 2009
  19. ZECLAR [Concomitant]
     Active Substance: CLARITHROMYCIN
     Indication: SKIN INFECTION
     Dosage: UNK UNK,UNK
     Route: 048
     Dates: start: 201702
  20. LOVENOX [Concomitant]
     Active Substance: ENOXAPARIN SODIUM
     Indication: PROPHYLAXIS
     Dosage: UNK UNK,UNK
     Route: 058
     Dates: start: 20170310, end: 20170410
  21. BACTRIM [Concomitant]
     Active Substance: SULFAMETHOXAZOLE\TRIMETHOPRIM
     Indication: OSTEOMYELITIS
     Dosage: UNK UNK,UNK
     Route: 048
     Dates: start: 20170319, end: 20170406
  22. TEICOPLANIN [Suspect]
     Active Substance: TEICOPLANIN
     Indication: ARTHRITIS INFECTIVE
     Dosage: 1000 MG,BID
     Route: 042
     Dates: start: 20170331, end: 20170401
  23. TEICOPLANIN [Suspect]
     Active Substance: TEICOPLANIN
     Dosage: 1500 MG,QD
     Route: 042
     Dates: start: 20170406, end: 20170406
  24. CALCIPARINE [Concomitant]
     Active Substance: HEPARIN CALCIUM
     Indication: PROPHYLAXIS
     Dosage: UNK UNK,UNK
     Route: 058
     Dates: start: 201705, end: 20170620
  25. ACUPAN [Concomitant]
     Active Substance: NEFOPAM HYDROCHLORIDE
     Indication: PAIN
     Dosage: UNK UNK,UNK
     Route: 042
     Dates: start: 20170317, end: 20170327
  26. PERFALGAN [Concomitant]
     Active Substance: ACETAMINOPHEN
     Indication: PAIN
     Dosage: UNK UNK,UNK
     Route: 042
     Dates: start: 20170409, end: 20170414
  27. TEICOPLANIN [Suspect]
     Active Substance: TEICOPLANIN
     Indication: OSTEOMYELITIS
     Dosage: 1000 MG,QD
     Route: 042
     Dates: start: 20170330, end: 20170330
  28. LAROXYL [Concomitant]
     Active Substance: AMITRIPTYLINE HYDROCHLORIDE
     Indication: PAIN
     Dosage: UNK UNK,UNK
     Route: 065
     Dates: end: 20170626
  29. TEICOPLANIN [Suspect]
     Active Substance: TEICOPLANIN
     Dosage: UNK UNK,BID
     Route: 042
     Dates: start: 20170403, end: 20170403
  30. MACROGOL [Concomitant]
     Active Substance: POLYETHYLENE GLYCOLS
     Indication: PROPHYLAXIS
     Dosage: UNK UNK,UNK
     Route: 048
     Dates: start: 20170403
  31. CEFOTAXIME [Concomitant]
     Active Substance: CEFOTAXIME SODIUM
     Indication: OSTEOMYELITIS
     Dosage: UNK UNK,UNK
     Dates: start: 20170317, end: 20170329
  32. LEDERFOLINE [Concomitant]
     Active Substance: LEUCOVORIN CALCIUM
     Indication: PROPHYLAXIS
     Dosage: UNK UNK,UNK
     Route: 065
     Dates: end: 2017
  33. TEICOPLANIN [Suspect]
     Active Substance: TEICOPLANIN
     Dosage: 1500 MG,QD
     Route: 042
     Dates: start: 20170406, end: 20170418
  34. IMIPENEM [Concomitant]
     Active Substance: IMIPENEM
     Indication: OSTEOMYELITIS
     Dosage: UNK UNK,UNK
     Route: 042
     Dates: start: 20170410, end: 20170414

REACTIONS (4)
  - Nephropathy toxic [Not Recovered/Not Resolved]
  - Transaminases increased [Recovered/Resolved]
  - Thrombocytopenia [Recovered/Resolved]
  - Anaemia [Not Recovered/Not Resolved]

NARRATIVE: CASE EVENT DATE: 20170410
